FAERS Safety Report 8816839 (Version 1)
Quarter: 2012Q4

REPORT INFORMATION
  Report Type: Spontaneous
  Country: US (occurrence: None)
  Receive Date: 20121002
  Receipt Date: 20121002
  Transmission Date: 20130627
  Serious: No
  Sender: FDA-Public Use
  Company Number: None

PATIENT
  Age: 65 Year
  Sex: Male
  Weight: 105 kg

DRUGS (1)
  1. DOCETAXEL [Suspect]
     Dosage: IV
     Route: 042
     Dates: start: 20120427, end: 20120517

REACTIONS (5)
  - Chest pain [None]
  - Dyspnoea [None]
  - Tachypnoea [None]
  - Palpitations [None]
  - Angina pectoris [None]
